FAERS Safety Report 25237391 (Version 1)
Quarter: 2025Q2

REPORT INFORMATION
  Report Type: Spontaneous
  Country: AU (occurrence: AU)
  Receive Date: 20250425
  Receipt Date: 20250425
  Transmission Date: 20250717
  Serious: Yes (Hospitalization, Other)
  Sender: RANBAXY
  Company Number: AU-SUN PHARMACEUTICAL INDUSTRIES LTD-2025R1-504657

PATIENT
  Age: 66 Year
  Sex: Male

DRUGS (14)
  1. LENALIDOMIDE [Suspect]
     Active Substance: LENALIDOMIDE
     Indication: Plasma cell myeloma
     Route: 048
     Dates: start: 20240909, end: 20241226
  2. Cartia [Concomitant]
     Indication: Product used for unknown indication
     Route: 048
     Dates: start: 2017
  3. SULFAMETHOXAZOLE\TRIMETHOPRIM [Concomitant]
     Active Substance: SULFAMETHOXAZOLE\TRIMETHOPRIM
     Indication: Prophylaxis
     Route: 048
     Dates: start: 202309, end: 20241023
  4. ACETAMINOPHEN [Concomitant]
     Active Substance: ACETAMINOPHEN
     Indication: Prophylaxis
     Route: 048
     Dates: start: 20241209
  5. ASPIRIN [Concomitant]
     Active Substance: ASPIRIN
     Indication: Prophylaxis
     Route: 048
     Dates: start: 20240909
  6. DIPHENHYDRAMINE HYDROCHLORIDE [Concomitant]
     Active Substance: DIPHENHYDRAMINE HYDROCHLORIDE
     Indication: Prophylaxis
     Route: 048
     Dates: start: 20241209
  7. EZETIMIBE [Concomitant]
     Active Substance: EZETIMIBE
     Indication: Prophylaxis
     Route: 048
     Dates: start: 2004
  8. FENOFIBRATE [Concomitant]
     Active Substance: FENOFIBRATE
     Indication: Product used for unknown indication
     Route: 065
  9. SIMVASTATIN [Concomitant]
     Active Substance: SIMVASTATIN
     Indication: Product used for unknown indication
     Route: 048
     Dates: start: 2004
  10. VALACYCLOVIR HYDROCHLORIDE [Concomitant]
     Active Substance: VALACYCLOVIR HYDROCHLORIDE
     Indication: Prophylaxis
     Route: 048
     Dates: start: 202409
  11. ZOMETA [Concomitant]
     Active Substance: ZOLEDRONIC ACID
     Indication: Product used for unknown indication
     Route: 042
     Dates: start: 202309
  12. FENOFIBRATE [Concomitant]
     Active Substance: FENOFIBRATE
     Indication: Product used for unknown indication
     Route: 048
     Dates: start: 2004
  13. ostelin [Concomitant]
     Indication: Product used for unknown indication
     Route: 048
     Dates: start: 202309
  14. lexipron [Concomitant]
     Indication: Product used for unknown indication
     Route: 065
     Dates: start: 20240801

REACTIONS (2)
  - Pneumocystis jirovecii pneumonia [Recovered/Resolved]
  - Pyrexia [Recovered/Resolved]

NARRATIVE: CASE EVENT DATE: 20241224
